FAERS Safety Report 8944177 (Version 1)
Quarter: 2012Q4

REPORT INFORMATION
  Report Type: 
  Country: FR (occurrence: FR)
  Receive Date: 20121204
  Receipt Date: 20121204
  Transmission Date: 20130627
  Serious: Yes (Hospitalization, Other)
  Sender: FDA-Public Use
  Company Number: FR-B.I. PHARMACEUTICALS,INC./RIDGEFIELD-2012-FF-01810FF

PATIENT
  Age: 87 Year
  Sex: Male

DRUGS (7)
  1. PRADAXA [Suspect]
     Indication: ATRIAL FIBRILLATION
     Dosage: 220 mg
     Route: 048
     Dates: start: 201203, end: 201211
  2. TAHOR [Concomitant]
  3. ZOLOFT [Concomitant]
  4. DAFALGAN [Concomitant]
  5. EUPANTOL [Concomitant]
  6. SECTRAL [Concomitant]
  7. ALLOPURINOL [Concomitant]

REACTIONS (5)
  - Ischaemic stroke [Not Recovered/Not Resolved]
  - Hemiparesis [Not Recovered/Not Resolved]
  - Aphasia [Not Recovered/Not Resolved]
  - Mutism [Not Recovered/Not Resolved]
  - Dysphagia [Not Recovered/Not Resolved]
